FAERS Safety Report 7656238-3 (Version None)
Quarter: 2011Q3

REPORT INFORMATION
  Report Type: 
  Country: None (occurrence: None)
  Receive Date: 20110804
  Receipt Date: 20110516
  Transmission Date: 20111222
  Serious: No
  Sender: FDA-Public Use
  Company Number: US-GLAXOSMITHKLINE-A0928999A

PATIENT
  Age: 70 Year
  Sex: Male

DRUGS (4)
  1. MIRAPEX [Concomitant]
  2. ULTRAM [Concomitant]
  3. HEARTBURN MEDICATION [Concomitant]
  4. HORIZANT [Suspect]
     Indication: RESTLESS LEGS SYNDROME
     Dosage: 600MG PER DAY
     Route: 048
     Dates: start: 20110513

REACTIONS (5)
  - FORMICATION [None]
  - FEELING ABNORMAL [None]
  - DISTURBANCE IN ATTENTION [None]
  - INSOMNIA [None]
  - EUPHORIC MOOD [None]
